FAERS Safety Report 4600605-9 (Version None)
Quarter: 2005Q1

REPORT INFORMATION
  Report Type: 
  Country: None (occurrence: None)
  Receive Date: 20050127
  Receipt Date: 20041011
  Transmission Date: 20050727
  Serious: No
  Sender: FDA-Public Use
  Company Number: USA041080685

PATIENT
  Age: 47 Year
  Sex: Female

DRUGS (4)
  1. STRATTERA [Suspect]
     Indication: ATTENTION DEFICIT/HYPERACTIVITY DISORDER
     Dosage: 60 MG
  2. DAILY VITAMINS [Concomitant]
  3. FISH OIL [Concomitant]
  4. IBUPROFEN [Concomitant]

REACTIONS (6)
  - DISTURBANCE IN ATTENTION [None]
  - FEELING ABNORMAL [None]
  - HEART RATE INCREASED [None]
  - HYPERAESTHESIA [None]
  - NAUSEA [None]
  - PRURITUS [None]
